FAERS Safety Report 5387166-4 (Version None)
Quarter: 2007Q3

REPORT INFORMATION
  Report Type: 
  Country: None (occurrence: None)
  Receive Date: 20070711
  Receipt Date: 20070626
  Transmission Date: 20080115
  Serious: Yes (Other)
  Sender: FDA-Public Use
  Company Number: 07-001388

PATIENT
  Sex: Female

DRUGS (1)
  1. FEMHRT [Suspect]
     Dosage: QD, ORAL
     Route: 048

REACTIONS (3)
  - CONVULSION [None]
  - DIZZINESS [None]
  - NAUSEA [None]
